FAERS Safety Report 9330213 (Version 1)
Quarter: 2013Q2

REPORT INFORMATION
  Report Type: Report from Study
  Country: FR (occurrence: FR)
  Receive Date: 20130604
  Receipt Date: 20130604
  Transmission Date: 20140414
  Serious: Yes (Hospitalization)
  Sender: FDA-Public Use
  Company Number: FR-TEVA-408065ISR

PATIENT
  Sex: 0

DRUGS (1)
  1. EFFENTORA [Suspect]
     Route: 002

REACTIONS (2)
  - Decreased appetite [Unknown]
  - General physical health deterioration [Unknown]
